FAERS Safety Report 8695726 (Version 3)
Quarter: 2013Q4

REPORT INFORMATION
  Report Type: Spontaneous
  Country: US (occurrence: US)
  Receive Date: 20120731
  Receipt Date: 20131101
  Transmission Date: 20140711
  Serious: No
  Sender: FDA-Public Use
  Company Number: US-009507513-1207USA001096

PATIENT
  Sex: Female

DRUGS (1)
  1. AZASITE [Suspect]
     Dosage: 2, QD
     Route: 047
     Dates: start: 20120626

REACTIONS (3)
  - Product packaging quantity issue [Unknown]
  - Incorrect drug administration duration [Unknown]
  - No adverse event [Unknown]
